FAERS Safety Report 11836639 (Version 1)
Quarter: 2015Q4

REPORT INFORMATION
  Report Type: Spontaneous
  Country: FR (occurrence: FR)
  Receive Date: 20151215
  Receipt Date: 20151215
  Transmission Date: 20160305
  Serious: Yes (Hospitalization)
  Sender: FDA-Public Use
  Company Number: FR-JNJFOC-20151206456

PATIENT
  Age: 86 Year
  Sex: Male

DRUGS (2)
  1. DUROGESIC [Suspect]
     Active Substance: FENTANYL
     Indication: VENOUS ULCER PAIN
     Route: 062
     Dates: start: 201510, end: 20151120
  2. OXYNORM [Suspect]
     Active Substance: OXYCODONE HYDROCHLORIDE
     Indication: VENOUS ULCER PAIN
     Dosage: 20 MG TO 40 MG PER DAY
     Route: 065

REACTIONS (4)
  - Confusional state [Recovered/Resolved]
  - Constipation [Unknown]
  - Hallucination [Recovered/Resolved]
  - General physical health deterioration [Unknown]

NARRATIVE: CASE EVENT DATE: 20151031
